FAERS Safety Report 15638235 (Version 1)
Quarter: 2018Q4

REPORT INFORMATION
  Report Type: Spontaneous
  Country: US (occurrence: US)
  Receive Date: 20181120
  Receipt Date: 20181120
  Transmission Date: 20190205
  Serious: No
  Sender: FDA-Public Use
  Company Number: US-JNJFOC-20180807981

PATIENT
  Sex: Male
  Weight: 110.66 kg

DRUGS (17)
  1. FISH OIL [Concomitant]
     Active Substance: FISH OIL
  2. NASONEX [Concomitant]
     Active Substance: MOMETASONE FUROATE
  3. ZINC. [Concomitant]
     Active Substance: ZINC
  4. NIACIN. [Concomitant]
     Active Substance: NIACIN
  5. IMBRUVICA [Suspect]
     Active Substance: IBRUTINIB
     Indication: CHRONIC LYMPHOCYTIC LEUKAEMIA
     Route: 048
  6. LISINOPRIL. [Concomitant]
     Active Substance: LISINOPRIL
  7. AZELASTINE. [Concomitant]
     Active Substance: AZELASTINE HYDROCHLORIDE
  8. VITAMIN D3 [Concomitant]
     Active Substance: CHOLECALCIFEROL
  9. IMBRUVICA [Suspect]
     Active Substance: IBRUTINIB
     Indication: CHRONIC LYMPHOCYTIC LEUKAEMIA
     Route: 048
  10. ATENOLOL. [Concomitant]
     Active Substance: ATENOLOL
  11. SIMVASTATIN. [Concomitant]
     Active Substance: SIMVASTATIN
  12. DULERA [Concomitant]
     Active Substance: FORMOTEROL FUMARATE DIHYDRATE\MOMETASONE FUROATE
  13. MULTIVITAMINS [Concomitant]
     Active Substance: VITAMINS
  14. ASCORBIC ACID. [Concomitant]
     Active Substance: ASCORBIC ACID
  15. UBIDECARENONE [Concomitant]
     Active Substance: UBIDECARENONE
  16. DOXAZOSIN [Concomitant]
     Active Substance: DOXAZOSIN\DOXAZOSIN MESYLATE
  17. ASPIRIN. [Concomitant]
     Active Substance: ASPIRIN

REACTIONS (4)
  - Weight decreased [Not Recovered/Not Resolved]
  - Product use issue [Unknown]
  - Arthropathy [Unknown]
  - Off label use [Unknown]
